FAERS Safety Report 7554085-4 (Version None)
Quarter: 2011Q2

REPORT INFORMATION
  Report Type: 
  Country: None (occurrence: None)
  Receive Date: 20110614
  Receipt Date: 20110614
  Transmission Date: 20111010
  Serious: Yes (Life-Threatening, Hospitalization)
  Sender: FDA-Public Use
  Company Number: None

PATIENT
  Age: 13 Year
  Sex: Female
  Weight: 80.7403 kg

DRUGS (1)
  1. AMITRIPTYLINE HCL [Suspect]
     Indication: HEADACHE
     Dosage: 10 MG 1X DAILY PO
     Route: 048
     Dates: start: 20110514, end: 20110517

REACTIONS (3)
  - HEADACHE [None]
  - SUICIDE ATTEMPT [None]
  - INCORRECT DOSE ADMINISTERED [None]
